FAERS Safety Report 16431046 (Version 2)
Quarter: 2020Q2

REPORT INFORMATION
  Report Type: Report from Study
  Country: CA (occurrence: CA)
  Receive Date: 20190614
  Receipt Date: 20200420
  Transmission Date: 20200713
  Serious: Yes (Hospitalization)
  Sender: FDA-Public Use
  Company Number: CA-GLAXOSMITHKLINE-CA2019GSK104271

PATIENT
  Age: 87 Year
  Sex: Male

DRUGS (1)
  1. MEPOLIZUMAB [Suspect]
     Active Substance: MEPOLIZUMAB
     Indication: ASTHMA
     Dosage: 100 MG, Z (1 MONTHS)
     Route: 042
     Dates: start: 20190510

REACTIONS (1)
  - Hernia [Unknown]

NARRATIVE: CASE EVENT DATE: 20190607
